FAERS Safety Report 21442492 (Version 1)
Quarter: 2022Q4

REPORT INFORMATION
  Report Type: Spontaneous
  Country: None (occurrence: CN)
  Receive Date: 20221011
  Receipt Date: 20221011
  Transmission Date: 20230113
  Serious: Yes (Other)
  Sender: FDA-Public Use
  Company Number: CN-Jiangsu Hengrui Medicine Co., Ltd.-2133712

PATIENT
  Age: 76 Year
  Sex: Female
  Weight: 55 kg

DRUGS (1)
  1. GABAPENTIN [Suspect]
     Active Substance: GABAPENTIN
     Indication: Analgesic therapy
     Route: 048
     Dates: start: 20191121, end: 20191122

REACTIONS (6)
  - Dizziness [Recovered/Resolved]
  - Asthenia [Recovered/Resolved]
  - Dysarthria [Recovered/Resolved]
  - Sluggishness [Recovered/Resolved]
  - Nausea [Recovered/Resolved]
  - Vomiting [Recovered/Resolved]

NARRATIVE: CASE EVENT DATE: 20191121
